FAERS Safety Report 5824487-2 (Version None)
Quarter: 2008Q3

REPORT INFORMATION
  Report Type: 
  Country: None (occurrence: None)
  Receive Date: 20080728
  Receipt Date: 20080717
  Transmission Date: 20090109
  Serious: Yes (Hospitalization)
  Sender: FDA-Public Use
  Company Number: CZ-JNJFOC-20080701674

PATIENT
  Age: 31 Year
  Sex: Male

DRUGS (5)
  1. REMICADE [Suspect]
     Route: 042
  2. REMICADE [Suspect]
     Indication: ANKYLOSING SPONDYLITIS
     Route: 042
  3. ANTIPHLOGISTICS [Concomitant]
  4. MELOXICAM [Concomitant]
  5. SULFASALAZIN [Concomitant]

REACTIONS (1)
  - TUBERCULOSIS [None]
